FAERS Safety Report 7172963-5 (Version None)
Quarter: 2010Q4

REPORT INFORMATION
  Report Type: 
  Country: None (occurrence: None)
  Receive Date: 20101219
  Receipt Date: 20100217
  Transmission Date: 20110411
  Serious: No
  Sender: FDA-Public Use
  Company Number: US-AMGEN-KDL393606

PATIENT

DRUGS (2)
  1. ENBREL [Suspect]
     Indication: PSORIASIS
     Dosage: 50 MG, QWK
     Route: 058
  2. ANTIBIOTICS [Concomitant]

REACTIONS (6)
  - GAIT DISTURBANCE [None]
  - INSOMNIA [None]
  - OEDEMA PERIPHERAL [None]
  - PAIN IN EXTREMITY [None]
  - PSORIASIS [None]
  - SINUSITIS [None]
